FAERS Safety Report 23775531 (Version 1)
Quarter: 2024Q2

REPORT INFORMATION
  Report Type: Spontaneous
  Country: CN (occurrence: CN)
  Receive Date: 20240423
  Receipt Date: 20240423
  Transmission Date: 20240716
  Serious: Yes (Other)
  Sender: FDA-Public Use
  Company Number: CN-SERVIER-S24004095

PATIENT

DRUGS (1)
  1. IVABRADINE HYDROCHLORIDE [Suspect]
     Active Substance: IVABRADINE HYDROCHLORIDE
     Indication: Cardiac failure chronic
     Dosage: UNK
     Route: 065

REACTIONS (5)
  - Renal impairment [Unknown]
  - Bradycardia [Unknown]
  - Atrial fibrillation [Unknown]
  - Vision blurred [Unknown]
  - Hypertension [Unknown]
